FAERS Safety Report 4596374-1 (Version None)
Quarter: 2005Q1

REPORT INFORMATION
  Report Type: 
  Country: None (occurrence: None)
  Receive Date: 20050228
  Receipt Date: 20050217
  Transmission Date: 20050727
  Serious: Yes (Life-Threatening, Hospitalization)
  Sender: FDA-Public Use
  Company Number: 2005SE00988

PATIENT
  Age: 47 Year
  Sex: Female

DRUGS (4)
  1. SIMESTAT [Suspect]
     Indication: HYPERCHOLESTEROLAEMIA
     Dosage: 10 MG DAILY PO
     Route: 048
     Dates: start: 20041014, end: 20050112
  2. SIMESTAT [Suspect]
     Indication: HYPERTRIGLYCERIDAEMIA
     Dosage: 10 MG DAILY PO
     Route: 048
     Dates: start: 20041014, end: 20050112
  3. SIMESTAT [Suspect]
     Indication: HYPERCHOLESTEROLAEMIA
     Dosage: 20 MG DAILY PO
     Route: 048
     Dates: start: 20050121, end: 20050201
  4. SIMESTAT [Suspect]
     Indication: HYPERTRIGLYCERIDAEMIA
     Dosage: 20 MG DAILY PO
     Route: 048
     Dates: start: 20050121, end: 20050201

REACTIONS (5)
  - ABDOMINAL SYMPTOM [None]
  - HAEMODIALYSIS [None]
  - JAUNDICE [None]
  - PANCREATITIS [None]
  - RENAL FAILURE [None]
